FAERS Safety Report 8775521 (Version 3)
Quarter: 2012Q4

REPORT INFORMATION
  Report Type: Report from Study
  Country: JP (occurrence: JP)
  Receive Date: 20120909
  Receipt Date: 20121114
  Transmission Date: 20130627
  Serious: Yes (Hospitalization)
  Sender: FDA-Public Use
  Company Number: JP-ABBOTT-12P-087-0976540-00

PATIENT
  Age: 31 Year
  Sex: Male
  Weight: 62 kg

DRUGS (5)
  1. HUMIRA [Suspect]
     Indication: CROHN^S DISEASE
     Route: 058
     Dates: start: 20120217, end: 20120217
  2. HUMIRA [Suspect]
     Dates: start: 20120305, end: 20120305
  3. HUMIRA [Suspect]
     Dates: start: 20120319
  4. PARENTERAL NUTRITION [Concomitant]
     Indication: CROHN^S DISEASE
     Route: 048
     Dates: start: 20120123
  5. AZATHIOPRINE 50PCH [Concomitant]
     Indication: CROHN^S DISEASE
     Route: 048
     Dates: start: 20120425

REACTIONS (2)
  - Intestinal obstruction [Recovered/Resolved]
  - Intestinal obstruction [Recovering/Resolving]
